FAERS Safety Report 8712265 (Version 2)
Quarter: 2013Q4

REPORT INFORMATION
  Report Type: Spontaneous
  Country: GB (occurrence: GB)
  Receive Date: 20120808
  Receipt Date: 20131008
  Transmission Date: 20140711
  Serious: Yes (Hospitalization)
  Sender: FDA-Public Use
  Company Number: GB-TEVA-351764ISR

PATIENT
  Age: 73 Year
  Sex: Female
  Weight: 76 kg

DRUGS (4)
  1. VENLAFAXINE [Suspect]
     Indication: DEPRESSION
     Dosage: 225 MILLIGRAM DAILY; BEEN ON FOR SEVERAL YEARS. 150 MG+ 75 MG ONCE DAILY
     Route: 048
  2. VENLAFAXINE [Suspect]
     Dosage: 150 MILLIGRAM DAILY; BEEN ON FOR SEVERAL YEARS
     Route: 048
     Dates: start: 20120611
  3. MIRTAZAPINE [Concomitant]
     Dosage: 30 MILLIGRAM DAILY; USED FOR SEVERAL YEARS
     Route: 048
  4. LANSOPRAZOLE [Concomitant]
     Dosage: 30 MILLIGRAM DAILY; USED FOR SEVERAL YEARS
     Route: 048

REACTIONS (2)
  - Heart rate decreased [Not Recovered/Not Resolved]
  - Atrioventricular block second degree [Not Recovered/Not Resolved]
